FAERS Safety Report 10595341 (Version 3)
Quarter: 2015Q4

REPORT INFORMATION
  Report Type: Spontaneous
  Country: US (occurrence: None)
  Receive Date: 20150309
  Receipt Date: 20151007
  Transmission Date: 20160304
  Serious: Yes (Hospitalization, Other)
  Sender: FDA-Public Use
  Company Number: RAP-0199-2014

PATIENT
  Age: 30 Year
  Sex: Female
  Weight: 42.6 kg

DRUGS (9)
  1. LABETALOL [Concomitant]
     Active Substance: LABETALOL\LABETALOL HYDROCHLORIDE
  2. NORCO (ACETAMINOPHEN AND HYDROCODONE) [Concomitant]
  3. CYSTARAN (MERCAPTAMINE) [Concomitant]
  4. KEPPRA [Concomitant]
     Active Substance: LEVETIRACETAM
  5. SOMA [Concomitant]
     Active Substance: CARISOPRODOL
  6. PROCYSBI DELAYED-RELEASE [Suspect]
     Active Substance: CYSTEAMINE BITARTRATE
     Indication: CYSTINOSIS
     Route: 048
     Dates: start: 20131120
  7. VIMPAT [Concomitant]
     Active Substance: LACOSAMIDE
  8. KLONOPIN [Concomitant]
     Active Substance: CLONAZEPAM
  9. CLONIDINE (CLONIDINE) [Concomitant]
     Active Substance: CLONIDINE

REACTIONS (2)
  - Blood potassium increased [None]
  - Blood calcium decreased [None]

NARRATIVE: CASE EVENT DATE: 201502
